FAERS Safety Report 14412654 (Version 9)
Quarter: 2018Q2

REPORT INFORMATION
  Report Type: Spontaneous
  Country: CA (occurrence: CA)
  Receive Date: 20180119
  Receipt Date: 20180618
  Transmission Date: 20180711
  Serious: Yes (Hospitalization, Other)
  Sender: FDA-Public Use
  Company Number: CA-CELLTRION INC.-2017CA017667

PATIENT

DRUGS (20)
  1. INFLECTRA [Suspect]
     Active Substance: INFLIXIMAB-DYYB
     Dosage: 5 MG/KG, CYCLIC, EVERY 2,6 AND EVERY 8 WEEKS
     Route: 042
     Dates: start: 20180126
  2. CALCIUM [Concomitant]
     Active Substance: CALCIUM
     Dosage: 500 MG, DAILY
  3. SYNTHROID [Concomitant]
     Active Substance: LEVOTHYROXINE SODIUM
     Dosage: 0.112 MG
  4. ACETAMINOPHEN. [Concomitant]
     Active Substance: ACETAMINOPHEN
     Dosage: 1000 MG, QID
     Dates: start: 201705
  5. HYDROMORPH [Concomitant]
     Active Substance: HYDROMORPHONE
     Dosage: UNK
  6. INFLECTRA [Suspect]
     Active Substance: INFLIXIMAB-DYYB
     Indication: CROHN^S DISEASE
     Dosage: 10 MG/KG, SINGLE
     Route: 042
     Dates: start: 20171229, end: 20171229
  7. DILTIAZEM TEVA [Concomitant]
  8. CORTISONE [Concomitant]
     Active Substance: CORTISONE\HYDROCORTISONE
     Dosage: UNK
  9. INFLECTRA [Suspect]
     Active Substance: INFLIXIMAB-DYYB
     Dosage: 5 MG/KG, CYCLIC, EVERY 2,6 AND EVERY 8 WEEKS
     Route: 042
     Dates: start: 20180220, end: 2018
  10. NOVO-LOPERAMIDE [Concomitant]
     Dosage: UNK
  11. TEVA ALENDRONATE/CHOLECALCIFEROL [Concomitant]
     Active Substance: ALENDRONATE SODIUM\CHOLECALCIFEROL
     Dosage: UNK
  12. VALACYCLOVIR [Concomitant]
     Active Substance: VALACYCLOVIR HYDROCHLORIDE
     Dosage: UNK
  13. APO-PREDNISONE [Concomitant]
     Active Substance: PREDNISONE
     Dosage: 5 MG
     Dates: start: 201705
  14. APO-CLONAZEPAM [Concomitant]
     Active Substance: CLONAZEPAM
     Dosage: 0.5 MG
  15. RIVASA [Concomitant]
     Active Substance: ASPIRIN
     Dosage: 80 MG, DAILY
  16. COVERSYL [Concomitant]
     Active Substance: PERINDOPRIL
     Dosage: 8 MG, DAILY
  17. RIVA-PANTOPRAZOLE [Concomitant]
     Dosage: 40 MG, DAILY
  18. LYRICA [Concomitant]
     Active Substance: PREGABALIN
     Route: 065
  19. VITAMIN D                          /00107901/ [Concomitant]
     Active Substance: ERGOCALCIFEROL
     Dosage: UNK
  20. ELAVIL [Concomitant]
     Active Substance: AMITRIPTYLINE HYDROCHLORIDE
     Dosage: UNK

REACTIONS (17)
  - Arthritis [Unknown]
  - Hot flush [Unknown]
  - Herpes zoster [Unknown]
  - Rash pruritic [Unknown]
  - Headache [Not Recovered/Not Resolved]
  - Hordeolum [Unknown]
  - Arthralgia [Unknown]
  - Product use issue [Unknown]
  - Drug ineffective [Unknown]
  - Somnolence [Unknown]
  - Blood pressure fluctuation [Unknown]
  - Osteoarthritis [Not Recovered/Not Resolved]
  - Gait disturbance [Unknown]
  - Systemic lupus erythematosus [Unknown]
  - Ophthalmic herpes zoster [Unknown]
  - Dizziness [Recovering/Resolving]
  - Night sweats [Unknown]

NARRATIVE: CASE EVENT DATE: 20171229
